FAERS Safety Report 10698824 (Version 1)
Quarter: 2015Q1

REPORT INFORMATION
  Report Type: Spontaneous
  Country: US (occurrence: US)
  Receive Date: 20150108
  Receipt Date: 20150108
  Transmission Date: 20150721
  Serious: Yes (Other)
  Sender: FDA-Public Use
  Company Number: US-BRISTOL-MYERS SQUIBB COMPANY-BMS-2014-006693

PATIENT
  Age: 66 Year
  Sex: Male

DRUGS (26)
  1. HYDROCODONE BITARTRATE AND ACETAMINOPHEN [Concomitant]
     Active Substance: ACETAMINOPHEN\HYDROCODONE BITARTRATE
  2. PRILOSEC [Concomitant]
     Active Substance: OMEPRAZOLE MAGNESIUM
  3. LIPITOR [Concomitant]
     Active Substance: ATORVASTATIN CALCIUM
  4. DEXAMETHASONE. [Concomitant]
     Active Substance: DEXAMETHASONE
  5. EMLA [Concomitant]
     Active Substance: LIDOCAINE\PRILOCAINE
  6. ALPRAZOLAM. [Concomitant]
     Active Substance: ALPRAZOLAM
  7. NOVOLOG [Concomitant]
     Active Substance: INSULIN ASPART
  8. CITALOPRAM [Concomitant]
     Active Substance: CITALOPRAM HYDROBROMIDE
  9. ARIXTRA [Concomitant]
     Active Substance: FONDAPARINUX SODIUM
  10. TYLENOL [Concomitant]
     Active Substance: ACETAMINOPHEN
  11. LANTUS [Concomitant]
     Active Substance: INSULIN GLARGINE
  12. CYANOCOBALAMIN. [Concomitant]
     Active Substance: CYANOCOBALAMIN
  13. ONDANSETRON [Concomitant]
     Active Substance: ONDANSETRON
  14. LORAZEPAM. [Concomitant]
     Active Substance: LORAZEPAM
  15. LISINOPRIL. [Concomitant]
     Active Substance: LISINOPRIL
  16. COLACE [Concomitant]
     Active Substance: DOCUSATE SODIUM
  17. PREDNISONE. [Concomitant]
     Active Substance: PREDNISONE
  18. CELEXA [Concomitant]
     Active Substance: CITALOPRAM HYDROBROMIDE
  19. GEMCITABINE [Concomitant]
     Active Substance: GEMCITABINE\GEMCITABINE HYDROCHLORIDE
  20. PALONOSETRON [Concomitant]
     Active Substance: PALONOSETRON
  21. FUROSEMIDE. [Concomitant]
     Active Substance: FUROSEMIDE
  22. ASPIRIN                            /00002701/ [Concomitant]
     Active Substance: ASPIRIN
  23. BENICAR [Concomitant]
     Active Substance: OLMESARTAN MEDOXOMIL
  24. EXENATIDE [Suspect]
     Active Substance: EXENATIDE
     Indication: PRODUCT USED FOR UNKNOWN INDICATION
     Route: 065
  25. MIRALAX [Concomitant]
     Active Substance: POLYETHYLENE GLYCOL 3350
  26. MARINOL                            /00003301/ [Concomitant]

REACTIONS (1)
  - Pancreatic carcinoma metastatic [Unknown]

NARRATIVE: CASE EVENT DATE: 20110620
